FAERS Safety Report 5143006-X (Version None)
Quarter: 2006Q4

REPORT INFORMATION
  Report Type: 
  Country: None (occurrence: None)
  Receive Date: 20061103
  Receipt Date: 20060706
  Transmission Date: 20070319
  Serious: Yes (Hospitalization, Other)
  Sender: FDA-Public Use
  Company Number: FR-ELI_LILLY_AND_COMPANY-FR200607000835

PATIENT
  Age: 44 Year
  Sex: Male

DRUGS (8)
  1. ZYPREXA [Suspect]
     Indication: SCHIZOPHRENIA
     Dosage: 5 MG, DAILY (1/D)
     Route: 060
     Dates: start: 20020101
  2. ZYPREXA [Suspect]
     Dosage: 10 MG, DAILY (1/D)
     Route: 060
     Dates: start: 19991007
  3. ZYPREXA [Suspect]
     Dosage: 40 MG, DAILY (1/D)
     Route: 060
     Dates: start: 20050920, end: 20060706
  4. ZYPREXA [Suspect]
     Dosage: 10 MG, DAILY (1/D)
     Route: 060
     Dates: end: 20061001
  5. HALOPERIDOL [Concomitant]
     Indication: SCHIZOPHRENIA
     Dosage: 5 MG, DAILY (1/D)
     Route: 048
     Dates: start: 20050920, end: 20060706
  6. HALOPERIDOL [Concomitant]
     Dosage: UNK, UNK
     Route: 048
     Dates: end: 20061001
  7. NOZINAN                                 /NET/ [Concomitant]
     Indication: SCHIZOPHRENIA
     Dosage: 50 MG, DAILY (1/D)
     Route: 048
     Dates: start: 20050920, end: 20060706
  8. SEMAP                                   /DEN/ [Concomitant]
     Indication: SCHIZOPHRENIA
     Dosage: 20 MG, DAILY (1/D)
     Route: 048
     Dates: start: 20050920, end: 20060706

REACTIONS (9)
  - CHOLELITHIASIS [None]
  - DISEASE RECURRENCE [None]
  - HEPATOCELLULAR DAMAGE [None]
  - HOMICIDAL IDEATION [None]
  - INTENTIONAL OVERDOSE [None]
  - JAUNDICE [None]
  - PHYSICAL ASSAULT [None]
  - PRURITUS GENERALISED [None]
  - SCHIZOPHRENIA [None]
